FAERS Safety Report 7630223-X (Version None)
Quarter: 2011Q3

REPORT INFORMATION
  Report Type: 
  Country: None (occurrence: None)
  Receive Date: 20110722
  Receipt Date: 20110714
  Transmission Date: 20111222
  Serious: Yes (Other)
  Sender: FDA-Public Use
  Company Number: US-PFIZER INC-2011016597

PATIENT
  Sex: Female

DRUGS (1)
  1. MEDROL [Suspect]

REACTIONS (1)
  - HALLUCINATION [None]
